FAERS Safety Report 7356575-6 (Version None)
Quarter: 2011Q1

REPORT INFORMATION
  Report Type: 
  Country: None (occurrence: None)
  Receive Date: 20110316
  Receipt Date: 20110303
  Transmission Date: 20110831
  Serious: Yes (Other)
  Sender: FDA-Public Use
  Company Number: PHHY2010BR67109

PATIENT
  Sex: Male

DRUGS (2)
  1. FORASEQ [Suspect]
  2. PREDNISONE [Concomitant]
     Dosage: 20 MG

REACTIONS (3)
  - LUNG DISORDER [None]
  - DYSPNOEA [None]
  - TOTAL LUNG CAPACITY DECREASED [None]
